FAERS Safety Report 19510560 (Version 1)
Quarter: 2021Q3

REPORT INFORMATION
  Report Type: Spontaneous
  Country: US (occurrence: US)
  Receive Date: 20210709
  Receipt Date: 20210709
  Transmission Date: 20211014
  Serious: Yes (Other)
  Sender: FDA-Public Use
  Company Number: US-GLAXOSMITHKLINE-US2021GSK144090

PATIENT
  Sex: Male

DRUGS (10)
  1. RANITIDINE. [Suspect]
     Active Substance: RANITIDINE
     Indication: HICCUPS
     Dosage: 150 MG, QD
     Route: 065
     Dates: start: 201004, end: 201901
  2. RANITIDINE. [Suspect]
     Active Substance: RANITIDINE
     Indication: DYSPEPSIA
  3. RANITIDINE. [Suspect]
     Active Substance: RANITIDINE
     Indication: DYSPEPSIA
  4. ZANTAC [Suspect]
     Active Substance: RANITIDINE HYDROCHLORIDE
     Indication: DYSPEPSIA
  5. RANITIDINE CAPSULE [Suspect]
     Active Substance: RANITIDINE
     Indication: HICCUPS
     Dosage: 150 MG, QD
     Route: 065
     Dates: start: 201004, end: 201901
  6. RANITIDINE CAPSULE [Suspect]
     Active Substance: RANITIDINE
     Indication: DYSPEPSIA
  7. RANITIDINE. [Suspect]
     Active Substance: RANITIDINE
     Indication: HICCUPS
     Dosage: 150 MG, QD
     Route: 065
     Dates: start: 201004, end: 201901
  8. RANITIDINE. [Suspect]
     Active Substance: RANITIDINE
     Indication: HICCUPS
     Dosage: 150 MG, QD
     Route: 065
     Dates: start: 201004, end: 201901
  9. ZANTAC [Suspect]
     Active Substance: RANITIDINE HYDROCHLORIDE
     Indication: HICCUPS
     Dosage: 25 MG, QD
     Route: 065
     Dates: start: 200904, end: 201901
  10. RANITIDINE. [Suspect]
     Active Substance: RANITIDINE
     Indication: DYSPEPSIA

REACTIONS (3)
  - Prostate cancer [Unknown]
  - Hypertension [Unknown]
  - Diabetes mellitus [Unknown]
